FAERS Safety Report 8075972-7 (Version None)
Quarter: 2012Q1

REPORT INFORMATION
  Report Type: 
  Country: None (occurrence: None)
  Receive Date: 20120127
  Receipt Date: 20101223
  Transmission Date: 20120608
  Serious: No
  Sender: FDA-Public Use
  Company Number: US-GLAXOSMITHKLINE-A0907757A

PATIENT
  Age: 27 Year
  Sex: Female

DRUGS (2)
  1. SPIRONOLACTONE [Concomitant]
     Dosage: 200MG PER DAY
  2. WELLBUTRIN XL [Suspect]
     Indication: DEPRESSION
     Dosage: 300MG PER DAY
     Route: 048
     Dates: start: 20100101

REACTIONS (2)
  - POLYMENORRHOEA [None]
  - ALOPECIA [None]
